FAERS Safety Report 5922909-X (Version None)
Quarter: 2008Q4

REPORT INFORMATION
  Report Type: 
  Country: None (occurrence: None)
  Receive Date: 20081017
  Receipt Date: 20081006
  Transmission Date: 20090506
  Serious: Yes (Life-Threatening)
  Sender: FDA-Public Use
  Company Number: IT-BAXTER-2008BH010631

PATIENT
  Age: 65 Year
  Sex: Female

DRUGS (4)
  1. SUPRANE [Suspect]
     Indication: INDUCTION OF ANAESTHESIA
     Dosage: DOSE UNIT:UNKNOWN
     Route: 055
     Dates: start: 20081001, end: 20081001
  2. ATRACURIUM BESYLATE [Suspect]
     Indication: INDUCTION OF ANAESTHESIA
     Route: 042
     Dates: start: 20081001, end: 20081001
  3. PROPOFOL [Suspect]
     Indication: INDUCTION OF ANAESTHESIA
     Route: 042
     Dates: start: 20081001, end: 20081001
  4. MIDARINE [Suspect]
     Indication: INDUCTION OF ANAESTHESIA
     Route: 042
     Dates: start: 20081001, end: 20081001

REACTIONS (3)
  - BRONCHOSPASM [None]
  - HYPOTENSION [None]
  - RASH [None]
